FAERS Safety Report 17732711 (Version 1)
Quarter: 2020Q2

REPORT INFORMATION
  Report Type: Spontaneous
  Country: RU (occurrence: RU)
  Receive Date: 20200501
  Receipt Date: 20200501
  Transmission Date: 20200714
  Serious: Yes (Other)
  Sender: FDA-Public Use
  Company Number: RU-ASTRAZENECA-2020SE56550

PATIENT
  Age: 86 Year
  Sex: Female
  Weight: 74 kg

DRUGS (6)
  1. CLOPIDOGREL [Suspect]
     Active Substance: CLOPIDOGREL BISULFATE
     Indication: ACUTE MYOCARDIAL INFARCTION
     Dosage: 75.0MG UNKNOWN
     Route: 065
  2. BISOPROLOL [Concomitant]
     Active Substance: BISOPROLOL
     Route: 048
  3. XARELTO [Suspect]
     Active Substance: RIVAROXABAN
     Indication: ACUTE MYOCARDIAL INFARCTION
     Route: 065
  4. NO-SPA [Concomitant]
     Active Substance: DROTAVERINE HYDROCHLORIDE
     Route: 048
  5. CORDAFLEX [Concomitant]
     Active Substance: NIFEDIPINE
     Route: 048
  6. BRILINTA [Suspect]
     Active Substance: TICAGRELOR
     Indication: ACUTE MYOCARDIAL INFARCTION
     Dosage: 90.0MG UNKNOWN
     Route: 048

REACTIONS (3)
  - Dyspnoea [Recovering/Resolving]
  - Asphyxia [Recovering/Resolving]
  - Abdominal pain [Recovering/Resolving]
